FAERS Safety Report 4390462-0 (Version None)
Quarter: 2004Q2

REPORT INFORMATION
  Report Type: 
  Country: None (occurrence: None)
  Receive Date: 20040630
  Receipt Date: 20040615
  Transmission Date: 20050107
  Serious: Yes (Other)
  Sender: FDA-Public Use
  Company Number: US-JNJFOC-20040402146

PATIENT
  Age: 64 Year
  Sex: Female
  Weight: 65.7716 kg

DRUGS (5)
  1. REMICADE [Suspect]
     Indication: CROHN'S DISEASE
     Dosage: 400 MG 3 IN, INTRAVENOUS; 400 MG, 1 IN 1 DAY, INTRAVENOUS; 400 MG, 1 IN 1 DAY, INTRAVENOUS
     Route: 042
     Dates: start: 20040212
  2. REMICADE [Suspect]
     Indication: CROHN'S DISEASE
     Dosage: 400 MG 3 IN, INTRAVENOUS; 400 MG, 1 IN 1 DAY, INTRAVENOUS; 400 MG, 1 IN 1 DAY, INTRAVENOUS
     Route: 042
     Dates: start: 20040227
  3. REMICADE [Suspect]
     Indication: CROHN'S DISEASE
     Dosage: 400 MG 3 IN, INTRAVENOUS; 400 MG, 1 IN 1 DAY, INTRAVENOUS; 400 MG, 1 IN 1 DAY, INTRAVENOUS
     Route: 042
     Dates: start: 20040326
  4. PENTASA [Concomitant]
  5. TYLENOL [Concomitant]

REACTIONS (4)
  - ASTHENIA [None]
  - DIFFICULTY IN WALKING [None]
  - HERPES ZOSTER [None]
  - MYALGIA [None]
